FAERS Safety Report 8923423 (Version 2)
Quarter: 2013Q1

REPORT INFORMATION
  Report Type: Spontaneous
  Country: US (occurrence: US)
  Receive Date: 20121123
  Receipt Date: 20130130
  Transmission Date: 20140127
  Serious: Yes (Life-Threatening, Hospitalization)
  Sender: FDA-Public Use
  Company Number: US-JNJFOC-20121105890

PATIENT
  Sex: Female
  Weight: 83.92 kg

DRUGS (11)
  1. DURAGESIC [Suspect]
     Indication: BACK INJURY
     Route: 062
     Dates: start: 2008
  2. DURAGESIC [Suspect]
     Indication: BACK INJURY
     Route: 062
     Dates: end: 2008
  3. DURAGESIC [Suspect]
     Indication: BACK INJURY
     Route: 062
     Dates: start: 20120122
  4. DURAGESIC [Suspect]
     Indication: BACK INJURY
     Route: 062
  5. DURAGESIC [Suspect]
     Indication: BACK INJURY
     Route: 062
     Dates: start: 201207, end: 2012
  6. DURAGESIC [Suspect]
     Indication: BACK INJURY
     Route: 062
     Dates: start: 2011, end: 201207
  7. VICODIN [Concomitant]
     Route: 048
  8. VOLTAREN [Concomitant]
     Route: 061
  9. ARAVA [Concomitant]
     Indication: RHEUMATOID ARTHRITIS
     Route: 065
     Dates: start: 2006, end: 2012
  10. TYLENOL ARTHRITIS [Concomitant]
     Indication: MUSCULOSKELETAL DISORDER
     Route: 065
     Dates: start: 2011
  11. LEFLUNOMIDE [Concomitant]
     Indication: RHEUMATOID ARTHRITIS
     Route: 065
     Dates: start: 2009, end: 2012

REACTIONS (15)
  - Acute respiratory distress syndrome [Recovered/Resolved]
  - Spinal cord injury [Not Recovered/Not Resolved]
  - Road traffic accident [Recovered/Resolved]
  - Respiratory failure [Recovered/Resolved]
  - Body height decreased [Unknown]
  - Rheumatoid arthritis [Not Recovered/Not Resolved]
  - Pain [Unknown]
  - Breakthrough pain [Recovered/Resolved]
  - Product quality issue [Unknown]
  - Insomnia [Not Recovered/Not Resolved]
  - Wrong technique in drug usage process [Unknown]
  - Injury [Recovered/Resolved]
  - Pruritus [Not Recovered/Not Resolved]
  - Skin irritation [Recovered/Resolved]
  - Product quality issue [Unknown]
